FAERS Safety Report 17174332 (Version 1)
Quarter: 2019Q4

REPORT INFORMATION
  Report Type: Spontaneous
  Country: US (occurrence: US)
  Receive Date: 20191219
  Receipt Date: 20191219
  Transmission Date: 20200122
  Serious: No
  Sender: FDA-Public Use
  Company Number: US-009507513-1911USA008563

PATIENT
  Age: 48 Year
  Sex: Female

DRUGS (1)
  1. REBETOL [Suspect]
     Active Substance: RIBAVIRIN
     Indication: ENCEPHALITIS VIRAL
     Dosage: DOSE OF 10 MG/KG, PER DAY
     Route: 048

REACTIONS (1)
  - Off label use [Unknown]
